FAERS Safety Report 9222420 (Version 2)
Quarter: 2013Q3

REPORT INFORMATION
  Report Type: Report from Study
  Country: DE (occurrence: DE)
  Receive Date: 20130410
  Receipt Date: 20130712
  Transmission Date: 20140515
  Serious: Yes (Hospitalization)
  Sender: FDA-Public Use
  Company Number: DE-BRISTOL-MYERS SQUIBB COMPANY-18742825

PATIENT
  Age: 70 Year
  Sex: Female
  Weight: 62 kg

DRUGS (5)
  1. CARBOPLATIN [Suspect]
     Indication: OVARIAN CANCER
     Dosage: RECENT DOSE 31DEC12-522.3MG
     Route: 042
     Dates: start: 20121029, end: 20130101
  2. PACLITAXEL [Suspect]
     Indication: OVARIAN CANCER
     Dosage: RECENT DOSE 31DEC12-301MG
     Route: 042
     Dates: start: 20121029, end: 20130101
  3. BEVACIZUMAB [Suspect]
     Indication: OVARIAN CANCER
     Dosage: RECENT DOSE 31DEC12-15MG/KG
     Route: 042
     Dates: start: 20121029
  4. GRANOCYTE [Concomitant]
     Indication: LEUKOPENIA
     Dosage: 1DF= 34000IE.?RECENT DOSE PRIOR TO SAE ON 08-JAN-2013
     Route: 058
     Dates: start: 20130103
  5. METOPROLOL [Concomitant]
     Indication: HYPERTENSION
     Route: 048
     Dates: start: 20130110

REACTIONS (2)
  - Cardiomyopathy [Recovered/Resolved]
  - Pancytopenia [Recovered/Resolved]
